FAERS Safety Report 7565594-6 (Version None)
Quarter: 2011Q2

REPORT INFORMATION
  Report Type: 
  Country: None (occurrence: None)
  Receive Date: 20110615
  Receipt Date: 20110611
  Transmission Date: 20111010
  Serious: Yes (Other)
  Sender: FDA-Public Use
  Company Number: 2011SP019768

PATIENT
  Age: 29 Year
  Sex: Female

DRUGS (1)
  1. DESOGESTREL AND ETHINYL ESTRADIOL [Suspect]
     Indication: CONTRACEPTION
     Dates: start: 20110420

REACTIONS (10)
  - ABNORMAL WITHDRAWAL BLEEDING [None]
  - METRORRHAGIA [None]
  - ACNE [None]
  - ABDOMINAL PAIN UPPER [None]
  - EPHELIDES [None]
  - DIZZINESS [None]
  - FEELING ABNORMAL [None]
  - IMPAIRED WORK ABILITY [None]
  - DYSPEPSIA [None]
  - HALLUCINATION [None]
